FAERS Safety Report 8515559-2 (Version None)
Quarter: 2012Q3

REPORT INFORMATION
  Report Type: 
  Country: None (occurrence: None)
  Receive Date: 20120717
  Receipt Date: 20120709
  Transmission Date: 20120928
  Serious: Yes (Other)
  Sender: FDA-Public Use
  Company Number: PHEH2012US013517

PATIENT
  Sex: Female

DRUGS (3)
  1. CARVEDILOL [Suspect]
     Dosage: 25 MG, BID
  2. ENALAPRIL MALEATE [Suspect]
     Dosage: UNK
  3. DIOVAN [Suspect]
     Dosage: UNK

REACTIONS (4)
  - COUGH [None]
  - HEART VALVE INCOMPETENCE [None]
  - NASOPHARYNGITIS [None]
  - CARDIAC FAILURE [None]
